FAERS Safety Report 7792184-2 (Version None)
Quarter: 2011Q4

REPORT INFORMATION
  Report Type: 
  Country: None (occurrence: None)
  Receive Date: 20111003
  Receipt Date: 20111003
  Transmission Date: 20120403
  Serious: No
  Sender: FDA-Public Use
  Company Number: None

PATIENT
  Sex: Male
  Weight: 74.842 kg

DRUGS (1)
  1. SEROQUEL [Suspect]
     Indication: BIPOLAR DISORDER
     Dosage: 200 MG
     Route: 048
     Dates: start: 20040701, end: 20070301

REACTIONS (4)
  - BALANCE DISORDER [None]
  - NEUROPATHY PERIPHERAL [None]
  - GAIT DISTURBANCE [None]
  - THERAPEUTIC PRODUCT INEFFECTIVE [None]
